FAERS Safety Report 9169079 (Version 1)
Quarter: 2013Q1

REPORT INFORMATION
  Report Type: Spontaneous
  Country: CA (occurrence: CA)
  Receive Date: 20130318
  Receipt Date: 20130318
  Transmission Date: 20140127
  Serious: Yes (Other)
  Sender: FDA-Public Use
  Company Number: CA-GLAXOSMITHKLINE-A1013864A

PATIENT
  Age: 86 Year
  Sex: Male
  Weight: 75.5 kg

DRUGS (5)
  1. AVODART [Suspect]
     Indication: LOWER URINARY TRACT SYMPTOMS
     Route: 048
     Dates: start: 20130206, end: 20130221
  2. FLOMAX [Concomitant]
  3. METOPROLOL [Concomitant]
  4. ANTICOAGULANT [Concomitant]
  5. WARFARIN [Concomitant]

REACTIONS (2)
  - Pain [Recovered/Resolved]
  - Chest pain [Recovered/Resolved]
